FAERS Safety Report 22996167 (Version 6)
Quarter: 2024Q2

REPORT INFORMATION
  Report Type: Report from Study
  Country: US (occurrence: US)
  Receive Date: 20230927
  Receipt Date: 20240502
  Transmission Date: 20240716
  Serious: Yes (Hospitalization, Other)
  Sender: FDA-Public Use
  Company Number: US-ABBVIE-5422998

PATIENT
  Sex: Male

DRUGS (3)
  1. VENCLEXTA [Suspect]
     Active Substance: VENETOCLAX
     Indication: Chronic lymphocytic leukaemia
     Dosage: LAST ADMIN DATE: 2023
     Route: 048
     Dates: start: 20230830
  2. VENCLEXTA [Suspect]
     Active Substance: VENETOCLAX
     Indication: Chronic lymphocytic leukaemia
     Route: 048
     Dates: start: 2023
  3. GABAPENTIN [Suspect]
     Active Substance: GABAPENTIN
     Indication: Product used for unknown indication
     Route: 065

REACTIONS (21)
  - Dehydration [Unknown]
  - Pain [Unknown]
  - Procedural pain [Unknown]
  - Arthralgia [Unknown]
  - Unevaluable event [Unknown]
  - Spleen disorder [Recovering/Resolving]
  - White blood cell count abnormal [Unknown]
  - Alopecia [Unknown]
  - Nausea [Recovered/Resolved]
  - Weight bearing difficulty [Unknown]
  - Peripheral swelling [Recovered/Resolved]
  - Emotional disorder [Unknown]
  - Pruritus [Unknown]
  - Asthenia [Unknown]
  - Lymphadenopathy [Recovering/Resolving]
  - Localised infection [Unknown]
  - Fatigue [Unknown]
  - Nausea [Unknown]
  - Back disorder [Unknown]
  - Cervical vertebral fracture [Unknown]
  - Constipation [Unknown]

NARRATIVE: CASE EVENT DATE: 20230101
